FAERS Safety Report 6239735-7 (Version None)
Quarter: 2009Q2

REPORT INFORMATION
  Report Type: 
  Country: None (occurrence: None)
  Receive Date: 20090619
  Receipt Date: 20090602
  Transmission Date: 20091009
  Serious: Yes (Death)
  Sender: FDA-Public Use
  Company Number: 8047620

PATIENT
  Age: 72 Year
  Sex: Male

DRUGS (4)
  1. LEVETIRACETAM [Suspect]
     Indication: STATUS EPILEPTICUS
     Dosage: 2000 MCG ONCE IV
     Route: 042
  2. LORAZEPAM [Suspect]
     Indication: STATUS EPILEPTICUS
     Dosage: 4 MG ONCE
  3. PHENYTOIN [Concomitant]
  4. PROPOFOL [Concomitant]

REACTIONS (5)
  - BRAIN OEDEMA [None]
  - MULTI-ORGAN FAILURE [None]
  - NO THERAPEUTIC RESPONSE [None]
  - PNEUMONIA ASPIRATION [None]
  - SEPSIS [None]
